FAERS Safety Report 4354408-3 (Version None)
Quarter: 2004Q2

REPORT INFORMATION
  Report Type: 
  Country: None (occurrence: None)
  Receive Date: 20040503
  Receipt Date: 20040419
  Transmission Date: 20050107
  Serious: No
  Sender: FDA-Public Use
  Company Number: 2004GB00950

PATIENT
  Age: 78 Year
  Sex: Female

DRUGS (4)
  1. SEROQUEL [Suspect]
     Indication: DEMENTIA
     Dosage: 25 MG QD PO
     Route: 048
     Dates: start: 20040215, end: 20040309
  2. ASPIRIN [Concomitant]
  3. ZOTON [Concomitant]
  4. REMINYL [Concomitant]

REACTIONS (3)
  - CONFUSIONAL STATE [None]
  - RASH [None]
  - URINE ANALYSIS ABNORMAL [None]
